FAERS Safety Report 18533481 (Version 2)
Quarter: 2020Q4

REPORT INFORMATION
  Report Type: Spontaneous
  Country: US (occurrence: US)
  Receive Date: 20201123
  Receipt Date: 20201211
  Transmission Date: 20210114
  Serious: No
  Sender: FDA-Public Use
  Company Number: US-TEVA-2020-US-1851152

PATIENT
  Sex: Male

DRUGS (2)
  1. ICLUSIG [Concomitant]
     Active Substance: PONATINIB
  2. SYNRIBO [Suspect]
     Active Substance: OMACETAXINE MEPESUCCINATE
     Indication: CHRONIC MYELOID LEUKAEMIA
     Dosage: SYNRIBO 3.5MG/ML,DOSAGE 2.5MG/0.77ML?FREQUENCY: BID FOR 14 DAYS OF 28 DAY CYCLE
     Route: 058
     Dates: start: 20201111

REACTIONS (4)
  - Blood count abnormal [Unknown]
  - Injection site erythema [Unknown]
  - Injection site urticaria [Unknown]
  - Injection site pain [Unknown]
